FAERS Safety Report 15566043 (Version 1)
Quarter: 2018Q4

REPORT INFORMATION
  Report Type: Spontaneous
  Country: US (occurrence: US)
  Receive Date: 20181025
  Receipt Date: 20181025
  Transmission Date: 20190205
  Serious: Yes (Hospitalization)
  Sender: FDA-Public Use
  Company Number: None

PATIENT
  Age: 17 Year
  Sex: Male
  Weight: 50.6 kg

DRUGS (3)
  1. ETOPOSIDE (VP-16) [Suspect]
     Active Substance: ETOPOSIDE
     Indication: DRUG THERAPY
     Dates: end: 20120806
  2. CYCLOPHOSPHAMIDE. [Suspect]
     Active Substance: CYCLOPHOSPHAMIDE
     Indication: DRUG THERAPY
     Dates: end: 20120806
  3. CLOLAR [Suspect]
     Active Substance: CLOFARABINE

REACTIONS (7)
  - Abdominal pain [None]
  - Pulmonary mass [None]
  - Pulmonary cavitation [None]
  - Weight decreased [None]
  - Neutropenia [None]
  - Vomiting [None]
  - Pyrexia [None]

NARRATIVE: CASE EVENT DATE: 20120811
